FAERS Safety Report 8123676-4 (Version None)
Quarter: 2012Q1

REPORT INFORMATION
  Report Type: 
  Country: None (occurrence: None)
  Receive Date: 20120208
  Receipt Date: 20120208
  Transmission Date: 20120608
  Serious: Yes (Hospitalization, Other)
  Sender: FDA-Public Use
  Company Number: PHFR2011IE02234

PATIENT
  Sex: Female
  Weight: 56 kg

DRUGS (11)
  1. CLOZARIL [Suspect]
     Dosage: 350 MG/DAY
     Route: 048
     Dates: start: 20100215
  2. VENLAFAXINE [Concomitant]
     Indication: ANTIDEPRESSANT THERAPY
     Dosage: 225 MG / MANE
     Route: 065
  3. LAMICTAL [Suspect]
     Indication: DEPRESSION
     Dosage: 50 MG/DAY
     Route: 048
     Dates: start: 20100901
  4. OLANZAPINE [Concomitant]
     Dosage: 10 MG MANE, 15 MG NOCTE
     Route: 065
  5. CITALOPRAM [Concomitant]
     Dosage: 20 MG/DAY
     Route: 048
     Dates: start: 20101001, end: 20110401
  6. CLOZARIL [Suspect]
     Dosage: 225 MG/DAY
     Route: 048
     Dates: end: 20110429
  7. CLOZARIL [Suspect]
     Indication: SCHIZOPHRENIA, PARANOID TYPE
     Dosage: 75 MG/DAY
     Route: 048
     Dates: start: 19970101, end: 19970101
  8. MIRTAZAPINE [Concomitant]
     Indication: ANTIDEPRESSANT THERAPY
     Dosage: 45 MG, UNK
     Route: 065
  9. ZOPICLONE [Concomitant]
     Dosage: 7.5 MG / NOCTE
     Route: 065
  10. FLUOXETINE [Suspect]
     Dosage: 20 MG/DAY
     Route: 048
     Dates: start: 20100201, end: 20101001
  11. ABILIFY [Concomitant]
     Dosage: 10 MG, BID
     Route: 048
     Dates: start: 20101001, end: 20110401

REACTIONS (11)
  - RASH [None]
  - GENERAL PHYSICAL HEALTH DETERIORATION [None]
  - ANTIPSYCHOTIC DRUG LEVEL INCREASED [None]
  - HALLUCINATION, AUDITORY [None]
  - DRUG INTERACTION [None]
  - MENTAL IMPAIRMENT [None]
  - CACHEXIA [None]
  - HYPOTENSION [None]
  - SOCIAL AVOIDANT BEHAVIOUR [None]
  - WEIGHT DECREASED [None]
  - TACHYCARDIA [None]
